FAERS Safety Report 8584036-5 (Version None)
Quarter: 2012Q3

REPORT INFORMATION
  Report Type: 
  Country: None (occurrence: None)
  Receive Date: 20120810
  Receipt Date: 20120726
  Transmission Date: 20120928
  Serious: Yes (Other)
  Sender: FDA-Public Use
  Company Number: US-009507513-1207USA012628

PATIENT

DRUGS (1)
  1. VICTRELIS [Suspect]
     Dosage: 800 MG, TID
     Route: 048

REACTIONS (2)
  - ANAEMIA [None]
  - MENTAL STATUS CHANGES [None]
